FAERS Safety Report 19835588 (Version 1)
Quarter: 2021Q3

REPORT INFORMATION
  Report Type: Spontaneous
  Country: US (occurrence: US)
  Receive Date: 20210915
  Receipt Date: 20210915
  Transmission Date: 20211014
  Serious: Yes (Other)
  Sender: FDA-Public Use
  Company Number: US-AMERICAN REGENT INC-2021002386

PATIENT
  Sex: Female

DRUGS (1)
  1. KETOROLAC TROMETHAMINE INJECTION, USP (0601?25) [Suspect]
     Active Substance: KETOROLAC TROMETHAMINE
     Indication: PAIN
     Dosage: UNK
     Route: 030

REACTIONS (1)
  - Acute respiratory failure [Recovering/Resolving]
